FAERS Safety Report 4888984-9 (Version None)
Quarter: 2005Q4

REPORT INFORMATION
  Report Type: 
  Country: None (occurrence: None)
  Receive Date: 20051215
  Receipt Date: 20050310
  Transmission Date: 20060501
  Serious: Yes (Other)
  Sender: FDA-Public Use
  Company Number: 2005026622

PATIENT
  Age: 58 Year
  Sex: Female
  Weight: 54.4316 kg

DRUGS (7)
  1. BEXTRA [Suspect]
     Indication: RHEUMATOID ARTHRITIS
     Dosage: 20 MG (20 MG,1 IN 1 D)
     Dates: start: 20030630
  2. TOPIRAMATE [Concomitant]
  3. ZONISAMIDE [Concomitant]
  4. LEVETIRACETAM [Concomitant]
  5. LEVOTHYROXINE SODIUM [Concomitant]
  6. FOLIC ACID [Concomitant]
  7. CENTRUM (MINERALS NO, VITAMINS NOS) [Concomitant]

REACTIONS (3)
  - PNEUMONIA [None]
  - RESPIRATORY TRACT CONGESTION [None]
  - SLEEP DISORDER [None]
